FAERS Safety Report 25551247 (Version 1)
Quarter: 2025Q3

REPORT INFORMATION
  Report Type: Spontaneous
  Country: CA (occurrence: CA)
  Receive Date: 20250714
  Receipt Date: 20250714
  Transmission Date: 20251021
  Serious: Yes (Hospitalization)
  Sender: MYLAN
  Company Number: CA-MYLANLABS-2025M1057889

PATIENT
  Age: 13 Year
  Sex: Male
  Weight: 49 kg

DRUGS (16)
  1. PHENYTOIN [Suspect]
     Active Substance: PHENYTOIN
     Indication: Seizure
     Dosage: 150 MILLIGRAM, BID (2 EVERY 1 DAYS)
  2. PHENYTOIN [Suspect]
     Active Substance: PHENYTOIN
     Dosage: 150 MILLIGRAM, BID (2 EVERY 1 DAYS)
     Route: 048
  3. PHENYTOIN [Suspect]
     Active Substance: PHENYTOIN
     Dosage: 150 MILLIGRAM, BID (2 EVERY 1 DAYS)
     Route: 048
  4. PHENYTOIN [Suspect]
     Active Substance: PHENYTOIN
     Dosage: 150 MILLIGRAM, BID (2 EVERY 1 DAYS)
  5. CLOBAZAM [Concomitant]
     Active Substance: CLOBAZAM
  6. CLOBAZAM [Concomitant]
     Active Substance: CLOBAZAM
     Route: 065
  7. CLOBAZAM [Concomitant]
     Active Substance: CLOBAZAM
     Route: 065
  8. CLOBAZAM [Concomitant]
     Active Substance: CLOBAZAM
  9. CLONIDINE [Concomitant]
     Active Substance: CLONIDINE
  10. CLONIDINE [Concomitant]
     Active Substance: CLONIDINE
     Route: 065
  11. CLONIDINE [Concomitant]
     Active Substance: CLONIDINE
     Route: 065
  12. CLONIDINE [Concomitant]
     Active Substance: CLONIDINE
  13. BANZEL [Concomitant]
     Active Substance: RUFINAMIDE
  14. BANZEL [Concomitant]
     Active Substance: RUFINAMIDE
     Route: 065
  15. BANZEL [Concomitant]
     Active Substance: RUFINAMIDE
     Route: 065
  16. BANZEL [Concomitant]
     Active Substance: RUFINAMIDE

REACTIONS (4)
  - Gait inability [Recovered/Resolved]
  - General physical health deterioration [Recovered/Resolved]
  - Hypotonia [Recovered/Resolved]
  - Incontinence [Recovered/Resolved]
